FAERS Safety Report 9380153 (Version 1)
Quarter: 2013Q3

REPORT INFORMATION
  Report Type: Spontaneous
  Country: US (occurrence: US)
  Receive Date: 20130702
  Receipt Date: 20130702
  Transmission Date: 20140515
  Serious: Yes (Other)
  Sender: FDA-Public Use
  Company Number: PHHY2013US066478

PATIENT
  Age: 62 Year
  Sex: Male

DRUGS (2)
  1. DOXORUBICIN [Suspect]
     Indication: SARCOMA
  2. IFOSFAMIDE [Suspect]
     Indication: SARCOMA

REACTIONS (5)
  - Acute lymphocytic leukaemia [Unknown]
  - Anaemia [Unknown]
  - Gingival bleeding [Unknown]
  - Thrombocytopenia [Unknown]
  - Petechiae [Unknown]
